FAERS Safety Report 21794833 (Version 4)
Quarter: 2023Q1

REPORT INFORMATION
  Report Type: Spontaneous
  Country: US (occurrence: US)
  Receive Date: 20221229
  Receipt Date: 20230127
  Transmission Date: 20230417
  Serious: Yes (Other)
  Sender: FDA-Public Use
  Company Number: US-PFIZER INC-PV202200130711

PATIENT
  Age: 64 Year
  Sex: Female

DRUGS (1)
  1. IBRANCE [Suspect]
     Active Substance: PALBOCICLIB
     Dosage: 125 MG

REACTIONS (7)
  - Neuropathy peripheral [Unknown]
  - Diarrhoea [Unknown]
  - Cough [Unknown]
  - Hot flush [Unknown]
  - Paraesthesia [Unknown]
  - Lethargy [Unknown]
  - Dizziness [Unknown]
